FAERS Safety Report 8260327-2 (Version None)
Quarter: 2012Q2

REPORT INFORMATION
  Report Type: 
  Country: None (occurrence: None)
  Receive Date: 20120404
  Receipt Date: 20120322
  Transmission Date: 20120825
  Serious: Yes (Life-Threatening, Hospitalization, Other)
  Sender: FDA-Public Use
  Company Number: US-ELI_LILLY_AND_COMPANY-US201203007582

PATIENT
  Age: 37 Year
  Sex: Male

DRUGS (3)
  1. CLONIDINE [Concomitant]
  2. CYMBALTA [Suspect]
     Indication: ANXIETY
     Dosage: UNK, UNKNOWN
  3. PROPRANOLOL [Concomitant]
     Dosage: UNK

REACTIONS (3)
  - DRUG SCREEN POSITIVE [None]
  - ENDOTRACHEAL INTUBATION [None]
  - HEART RATE DECREASED [None]
